FAERS Safety Report 8821453 (Version 1)
Quarter: 2012Q4

REPORT INFORMATION
  Report Type: 
  Country: CA (occurrence: CA)
  Receive Date: 20121002
  Receipt Date: 20121002
  Transmission Date: 20130627
  Serious: Yes (Other)
  Sender: FDA-Public Use
  Company Number: CA-ROCHE-GNE317850

PATIENT
  Sex: Female

DRUGS (1)
  1. XOLAIR [Suspect]
     Indication: ASTHMA
     Dosage: 300 mg, 1/Month
     Route: 058
     Dates: start: 20081223

REACTIONS (3)
  - Thyroid neoplasm [Unknown]
  - Lower respiratory tract infection [Not Recovered/Not Resolved]
  - Stress fracture [Unknown]
